FAERS Safety Report 12157259 (Version 3)
Quarter: 2016Q2

REPORT INFORMATION
  Report Type: Spontaneous
  Country: IT (occurrence: IT)
  Receive Date: 20160308
  Receipt Date: 20160415
  Transmission Date: 20160815
  Serious: Yes (Hospitalization)
  Sender: FDA-Public Use
  Company Number: IT-ROCHE-1721644

PATIENT
  Age: 53 Year
  Sex: Female
  Weight: 40 kg

DRUGS (1)
  1. VISMODEGIB [Suspect]
     Active Substance: VISMODEGIB
     Indication: BASAL CELL CARCINOMA
     Route: 048
     Dates: start: 20151126, end: 20160120

REACTIONS (1)
  - Breast cancer in situ [Unknown]

NARRATIVE: CASE EVENT DATE: 20160120
